FAERS Safety Report 4609804-3 (Version None)
Quarter: 2005Q1

REPORT INFORMATION
  Report Type: 
  Country: None (occurrence: None)
  Receive Date: 20050316
  Receipt Date: 20050302
  Transmission Date: 20050727
  Serious: Yes (Death)
  Sender: FDA-Public Use
  Company Number: NSADSS2003017171

PATIENT
  Age: 50 Year
  Sex: Female

DRUGS (2)
  1. ELMIRON [Suspect]
     Indication: CYSTITIS INTERSTITIAL
     Route: 049
     Dates: start: 20030402
  2. HERBAL SUPPLEMENTS [Concomitant]
     Indication: DRUG USE FOR UNKNOWN INDICATION

REACTIONS (2)
  - BLADDER CANCER [None]
  - HAEMORRHAGE URINARY TRACT [None]
